FAERS Safety Report 21091884 (Version 1)
Quarter: 2022Q3

REPORT INFORMATION
  Report Type: Spontaneous
  Country: US (occurrence: US)
  Receive Date: 20220717
  Receipt Date: 20220717
  Transmission Date: 20221027
  Serious: No
  Sender: FDA-Public Use
  Company Number: US-009507513-2207USA003156

PATIENT
  Age: 63 Year
  Sex: Male

DRUGS (1)
  1. BELSOMRA [Suspect]
     Active Substance: SUVOREXANT
     Dosage: 10 MILLIGRAM
     Route: 048

REACTIONS (2)
  - Therapy change [Unknown]
  - No adverse event [Unknown]

NARRATIVE: CASE EVENT DATE: 20220630
